FAERS Safety Report 14860895 (Version 1)
Quarter: 2018Q2

REPORT INFORMATION
  Report Type: Spontaneous
  Country: US (occurrence: US)
  Receive Date: 20180508
  Receipt Date: 20180508
  Transmission Date: 20180711
  Serious: No
  Sender: FDA-Public Use
  Company Number: US-GLENMARK PHARMACEUTICALS-2017GMK030321

PATIENT

DRUGS (1)
  1. TOPIRAMATE TABLETS 100MG [Suspect]
     Active Substance: TOPIRAMATE
     Indication: ALCOHOLISM
     Dosage: 200 MG, BID
     Route: 048

REACTIONS (4)
  - Adverse drug reaction [Unknown]
  - Paraesthesia [Not Recovered/Not Resolved]
  - Drug ineffective for unapproved indication [Unknown]
  - Hypersensitivity [Not Recovered/Not Resolved]
